FAERS Safety Report 11657725 (Version 2)
Quarter: 2015Q4

REPORT INFORMATION
  Report Type: Report from Study
  Country: US (occurrence: US)
  Receive Date: 20151023
  Receipt Date: 20151027
  Transmission Date: 20160304
  Serious: No
  Sender: FDA-Public Use
  Company Number: US-ABBVIE-15P-163-1346054-00

PATIENT
  Age: 42 Year
  Sex: Female
  Weight: 90.8 kg

DRUGS (9)
  1. MID NITE (MELATONIN) [Concomitant]
     Indication: INSOMNIA
     Dosage: 3 OR 4 TABLETS AT NIGHT
     Route: 048
  2. TOPAMAX [Interacting]
     Active Substance: TOPIRAMATE
     Route: 048
     Dates: start: 20150101, end: 20150107
  3. TOPAMAX [Interacting]
     Active Substance: TOPIRAMATE
     Route: 048
     Dates: start: 20150108
  4. LUPRON DEPOT [Interacting]
     Active Substance: LEUPROLIDE ACETATE
     Indication: ADENOMYOSIS
  5. TOPAMAX [Interacting]
     Active Substance: TOPIRAMATE
     Indication: MIGRAINE
     Route: 048
     Dates: start: 20141225, end: 20141231
  6. XANAX [Concomitant]
     Active Substance: ALPRAZOLAM
     Indication: ANXIETY
     Dosage: UNK; SOMETIMES TAKES 1.5MG DAILY
     Route: 048
  7. TOPAMAX [Interacting]
     Active Substance: TOPIRAMATE
     Dosage: TWO TABLETS IN THE MORNING AND TWO TABLETS AT NIGHT
     Route: 048
     Dates: end: 20150225
  8. DEXILANT [Concomitant]
     Active Substance: DEXLANSOPRAZOLE
     Indication: GASTROOESOPHAGEAL REFLUX DISEASE
     Route: 048
  9. LUPRON DEPOT [Suspect]
     Active Substance: LEUPROLIDE ACETATE
     Indication: ENDOMETRIOSIS
     Route: 050
     Dates: start: 20141013

REACTIONS (16)
  - Vaginal haemorrhage [Recovered/Resolved]
  - Muscle spasms [Recovered/Resolved]
  - Hot flush [Unknown]
  - Vaginal discharge [Recovered/Resolved]
  - Breast pain [Recovered/Resolved]
  - Migraine [Unknown]
  - Vaginal haemorrhage [Recovered/Resolved]
  - Drug ineffective [Unknown]
  - Fatigue [Not Recovered/Not Resolved]
  - Tremor [Not Recovered/Not Resolved]
  - Premenstrual syndrome [Recovered/Resolved]
  - Drug interaction [Not Recovered/Not Resolved]
  - Joint swelling [Not Recovered/Not Resolved]
  - Migraine [Not Recovered/Not Resolved]
  - Vaginal haemorrhage [Recovered/Resolved]
  - Headache [Recovered/Resolved]

NARRATIVE: CASE EVENT DATE: 201410
